FAERS Safety Report 21517507 (Version 3)
Quarter: 2022Q4

REPORT INFORMATION
  Report Type: Spontaneous
  Country: ES (occurrence: None)
  Receive Date: 20221028
  Receipt Date: 20221201
  Transmission Date: 20230112
  Serious: Yes (Other)
  Sender: FDA-Public Use
  Company Number: ES-ROCHE-3206073

PATIENT
  Age: 43 Year
  Sex: Female
  Weight: 65 kg

DRUGS (1)
  1. RITUXIMAB [Suspect]
     Active Substance: RITUXIMAB
     Indication: Product used for unknown indication
     Dosage: THE DATE OF THE INFUSION WAS ON 19/OCT/2022.
     Route: 065
     Dates: start: 20221019

REACTIONS (5)
  - Carotid artery dissection [Unknown]
  - Cerebellar stroke [Unknown]
  - Off label use [Unknown]
  - Thalamic stroke [Unknown]
  - Thrombotic stroke [Unknown]
